FAERS Safety Report 25632528 (Version 1)
Quarter: 2025Q3

REPORT INFORMATION
  Report Type: Spontaneous
  Country: JP (occurrence: JP)
  Receive Date: 20250801
  Receipt Date: 20250801
  Transmission Date: 20251020
  Serious: Yes (Death, Hospitalization)
  Sender: MERCK SHARP & DOHME LLC
  Company Number: JP-MSD-2501JPN003561J

PATIENT
  Age: 7 Decade
  Sex: Male

DRUGS (4)
  1. KEYTRUDA [Suspect]
     Active Substance: PEMBROLIZUMAB
     Indication: Renal cell carcinoma
     Dosage: DOSE DESCRIPTION : 200 MILLIGRAM, Q3W?DAILY DOSE : 9.4 MILLIGRAM?REGIMEN DOSE : 200  MILLIGRAM
     Route: 041
     Dates: start: 20241119
  2. KEYTRUDA [Suspect]
     Active Substance: PEMBROLIZUMAB
     Indication: Renal cell carcinoma
     Dosage: 200MGX1/3 WEEKS
     Route: 041
     Dates: start: 202501, end: 202504
  3. LENVATINIB MESYLATE [Suspect]
     Active Substance: LENVATINIB MESYLATE
     Indication: Renal cell carcinoma
     Dosage: DOSE DESCRIPTION : 14 MILLIGRAM, QD?DAILY DOSE : 14 MILLIGRAM
     Route: 048
     Dates: start: 20241119
  4. LENVATINIB MESYLATE [Suspect]
     Active Substance: LENVATINIB MESYLATE
     Indication: Renal cell carcinoma
     Route: 048
     Dates: start: 202501, end: 202504

REACTIONS (6)
  - Immune-mediated dermatitis [Not Recovered/Not Resolved]
  - Pruritus [Unknown]
  - Decreased appetite [Unknown]
  - Constipation [Unknown]
  - Erythema multiforme [Recovering/Resolving]
  - Malignant neoplasm progression [Fatal]

NARRATIVE: CASE EVENT DATE: 20250401
